FAERS Safety Report 7495310-8 (Version None)
Quarter: 2011Q2

REPORT INFORMATION
  Report Type: 
  Country: None (occurrence: None)
  Receive Date: 20110523
  Receipt Date: 20110512
  Transmission Date: 20111010
  Serious: Yes (Hospitalization)
  Sender: FDA-Public Use
  Company Number: US-BIOGENIDEC-2011BI003222

PATIENT
  Age: 60 Year
  Sex: Female

DRUGS (1)
  1. TYSABRI [Suspect]
     Indication: MULTIPLE SCLEROSIS
     Route: 042
     Dates: start: 20080815

REACTIONS (5)
  - ARTHRALGIA [None]
  - DEHYDRATION [None]
  - TEMPOROMANDIBULAR JOINT SYNDROME [None]
  - MENTAL IMPAIRMENT [None]
  - TRIGEMINAL NEURALGIA [None]
